FAERS Safety Report 6066316-0 (Version None)
Quarter: 2009Q1

REPORT INFORMATION
  Report Type: 
  Country: None (occurrence: None)
  Receive Date: 20090203
  Receipt Date: 20090122
  Transmission Date: 20090719
  Serious: Yes (Death)
  Sender: FDA-Public Use
  Company Number: KV200900121

PATIENT
  Age: 93 Year
  Sex: Female
  Weight: 48.5 kg

DRUGS (3)
  1. MORPHINE SULFATE [Suspect]
     Indication: OSTEOPOROSIS
     Dosage: 15 MG, BID,ORAL
     Route: 048
     Dates: start: 20081011, end: 20081021
  2. MORPHINE SULFATE [Suspect]
     Indication: PAIN
     Dosage: 15 MG, BID,ORAL
     Route: 048
     Dates: start: 20081011, end: 20081021
  3. TYLENOL ARTHRITIS (PARACETAMOL) [Concomitant]

REACTIONS (2)
  - ARTERIOSCLEROSIS CORONARY ARTERY [None]
  - PRODUCT QUALITY ISSUE [None]
